FAERS Safety Report 9902845 (Version 1)
Quarter: 2014Q1

REPORT INFORMATION
  Report Type: Spontaneous
  Country: GB (occurrence: GB)
  Receive Date: 20140217
  Receipt Date: 20140217
  Transmission Date: 20141002
  Serious: Yes (Other)
  Sender: FDA-Public Use
  Company Number: ALCN2014GB001087

PATIENT
  Age: 77 Year
  Sex: Male
  Weight: 70 kg

DRUGS (14)
  1. CIPROFLOXACIN [Suspect]
     Dosage: UNK
     Route: 065
     Dates: start: 20140107
  2. ADIZEM-XL [Concomitant]
     Dosage: UNK
     Dates: start: 20131028
  3. BUDESONIDE [Concomitant]
     Dosage: UNK
     Dates: start: 20131204, end: 20140128
  4. CARBOCISTEINE [Concomitant]
     Dosage: UNK
     Dates: start: 20140109
  5. FINASTERIDE [Concomitant]
     Dosage: UNK
     Dates: start: 20131216, end: 20140113
  6. ISOSORBIDE MONONITRATE [Concomitant]
     Dosage: UNK
     Dates: start: 20131216
  7. NICORANDIL [Concomitant]
     Dosage: UNK
     Dates: start: 20140109
  8. OMEPRAZOLE [Concomitant]
     Dosage: UNK
     Dates: start: 20131231
  9. RAMIPRIL [Concomitant]
     Dosage: UNK
     Dates: start: 20131216, end: 20140113
  10. SALBUTAMOL [Concomitant]
     Dosage: UNK
     Dates: start: 20131030
  11. SIMVASTATIN [Concomitant]
     Dosage: UNK
     Dates: start: 20140109
  12. TIOTROPIUM [Concomitant]
     Dosage: UNK
     Dates: start: 20140128
  13. UNIPHYLLIN [Concomitant]
     Dosage: UNK
     Dates: start: 20131114, end: 20140113
  14. CETRABEN [Concomitant]
     Dosage: UNK

REACTIONS (1)
  - Anaphylactic reaction [Recovered/Resolved]
